FAERS Safety Report 9545166 (Version 1)
Quarter: 2013Q3

REPORT INFORMATION
  Report Type: Spontaneous
  Country: US (occurrence: US)
  Receive Date: 20130923
  Receipt Date: 20130923
  Transmission Date: 20140515
  Serious: No
  Sender: FDA-Public Use
  Company Number: US-GLAXOSMITHKLINE-A1005195A

PATIENT
  Age: 81 Year
  Sex: Female

DRUGS (5)
  1. ABREVA [Suspect]
     Indication: ORAL HERPES
  2. OXYBUTYNIN [Concomitant]
  3. VASELINE [Concomitant]
  4. BIOTENE TOOTHPASTE [Concomitant]
  5. BIOTENE ORAL RINSE [Concomitant]

REACTIONS (4)
  - Lip swelling [Not Recovered/Not Resolved]
  - Drug ineffective [Unknown]
  - Drug administration error [Unknown]
  - Product quality issue [Unknown]
